FAERS Safety Report 8832884 (Version 1)
Quarter: 2012Q4

REPORT INFORMATION
  Report Type: 
  Country: US (occurrence: None)
  Receive Date: 20121009
  Receipt Date: 20121009
  Transmission Date: 20130627
  Serious: Yes (Death, Hospitalization)
  Sender: FDA-Public Use
  Company Number: None

PATIENT
  Sex: Male
  Weight: 11 kg

DRUGS (3)
  1. CYTARABINE [Suspect]
     Dates: end: 20120929
  2. DAUNORUBICIN [Suspect]
     Dates: end: 20120917
  3. ETOPOSIDE [Suspect]
     Dates: end: 20120917

REACTIONS (11)
  - Cellulitis [None]
  - Leukocytosis [None]
  - Anaemia [None]
  - Thrombocytopenia [None]
  - Pulmonary oedema [None]
  - Pleural effusion [None]
  - Urine output decreased [None]
  - Abdominal compartment syndrome [None]
  - Enterobacter infection [None]
  - Escherichia infection [None]
  - Gastrointestinal necrosis [None]
